FAERS Safety Report 7472440-8 (Version None)
Quarter: 2011Q2

REPORT INFORMATION
  Report Type: 
  Country: None (occurrence: None)
  Receive Date: 20110511
  Receipt Date: 20110506
  Transmission Date: 20111010
  Serious: Yes (Hospitalization, Other)
  Sender: FDA-Public Use
  Company Number: US-SANOFI-AVENTIS-2011SA025585

PATIENT
  Age: 39 Year
  Sex: Female

DRUGS (1)
  1. ALLEGRA D 24 HOUR [Suspect]
     Route: 048

REACTIONS (5)
  - EPILEPSY [None]
  - CONVULSION [None]
  - AMNESIA [None]
  - STILLBIRTH [None]
  - DRUG EXPOSURE DURING PREGNANCY [None]
